FAERS Safety Report 7432650-2 (Version None)
Quarter: 2011Q2

REPORT INFORMATION
  Report Type: 
  Country: None (occurrence: None)
  Receive Date: 20110422
  Receipt Date: 20110421
  Transmission Date: 20111010
  Serious: Yes (Hospitalization, Other)
  Sender: FDA-Public Use
  Company Number: FR-ROCHE-709775

PATIENT
  Sex: Female
  Weight: 60 kg

DRUGS (3)
  1. BEVACIZUMAB [Suspect]
     Dosage: DATE OF LAST DOSE PRIOR TO SAE: 27 APRIL 2010
     Route: 042
     Dates: start: 20100330, end: 20100619
  2. DOXORUBICIN [Suspect]
     Dosage: DOSE PRIOR TO SAE:27 APRIL 2010, DRUG NAME:PDL(PEGYLATED LIPOSOMAL DOXORUBICIN), TEMPORARILYINTERUPT
     Route: 042
     Dates: start: 20100331, end: 20100619
  3. DOXORUBICIN [Suspect]
     Route: 042
     Dates: start: 20100716

REACTIONS (2)
  - ILEUS [None]
  - IMPLANT SITE NECROSIS [None]
